FAERS Safety Report 16341967 (Version 1)
Quarter: 2019Q2

REPORT INFORMATION
  Report Type: Report from Study
  Country: None (occurrence: CA)
  Receive Date: 20190522
  Receipt Date: 20190522
  Transmission Date: 20190711
  Serious: Yes (Hospitalization)
  Sender: FDA-Public Use
  Company Number: CA-ABBVIE-19K-028-2788115-00

PATIENT
  Age: 66 Year
  Sex: Female

DRUGS (2)
  1. HUMIRA [Suspect]
     Active Substance: ADALIMUMAB
     Route: 058
     Dates: start: 20190430
  2. HUMIRA [Suspect]
     Active Substance: ADALIMUMAB
     Indication: ANKYLOSING SPONDYLITIS
     Route: 058
     Dates: start: 20180619, end: 201904

REACTIONS (7)
  - Pneumonia [Unknown]
  - Pulmonary haemorrhage [Unknown]
  - Muscular weakness [Unknown]
  - Influenza [Unknown]
  - Cough [Unknown]
  - Cardiac disorder [Unknown]
  - Haemoptysis [Unknown]

NARRATIVE: CASE EVENT DATE: 201904
